FAERS Safety Report 9863842 (Version 1)
Quarter: 2014Q1

REPORT INFORMATION
  Report Type: Spontaneous
  Country: US (occurrence: US)
  Receive Date: 20140203
  Receipt Date: 20140203
  Transmission Date: 20141002
  Serious: Yes (Hospitalization)
  Sender: FDA-Public Use
  Company Number: US-GLAXOSMITHKLINE-A1059117A

PATIENT
  Age: 62 Year
  Sex: Female
  Weight: 90.9 kg

DRUGS (4)
  1. WELLBUTRIN [Suspect]
     Indication: DEPRESSION
     Dosage: 100MG PER DAY
     Route: 065
  2. EFFEXOR XR [Suspect]
     Indication: DEPRESSION
     Dates: start: 201011, end: 201307
  3. VENLAFAXINE HYDROCHLORIDE [Suspect]
     Indication: DEPRESSION
  4. NO CONCURRENT MEDICATION [Concomitant]

REACTIONS (2)
  - Adverse event [Unknown]
  - Drug ineffective [Unknown]
